FAERS Safety Report 21209295 (Version 2)
Quarter: 2025Q1

REPORT INFORMATION
  Report Type: Spontaneous
  Country: US (occurrence: US)
  Receive Date: 20220813
  Receipt Date: 20250205
  Transmission Date: 20250409
  Serious: Yes (Other)
  Sender: BRISTOL-MYERS SQUIBB COMPANY
  Company Number: US-BRISTOL-MYERS SQUIBB COMPANY-2022-087894

PATIENT
  Age: 60 Year
  Sex: Male
  Weight: 60 kg

DRUGS (13)
  1. REVLIMID [Suspect]
     Active Substance: LENALIDOMIDE
     Indication: Plasma cell myeloma
     Dosage: 5MG PO QD
     Route: 048
     Dates: start: 20210115
  2. SIMETHICONE (DIMETHICONE) [Concomitant]
     Active Substance: DIMETHICONE
  3. ASPIRIN [Concomitant]
     Active Substance: ASPIRIN
  4. VELCADE [Concomitant]
     Active Substance: BORTEZOMIB
  5. PROCHLORPERAZINE [Concomitant]
     Active Substance: PROCHLORPERAZINE
  6. VALTREX [Concomitant]
     Active Substance: VALACYCLOVIR HYDROCHLORIDE
  7. BACTRIM DS [Concomitant]
     Active Substance: SULFAMETHOXAZOLE\TRIMETHOPRIM
  8. MS CONTIN [Concomitant]
     Active Substance: MORPHINE SULFATE
  9. LIDODERM [Concomitant]
     Active Substance: LIDOCAINE
  10. OXYCODONE [Concomitant]
     Active Substance: OXYCODONE
  11. SENNA LEAF [Concomitant]
     Active Substance: SENNA LEAF
  12. ZOFRAN [Concomitant]
     Active Substance: ONDANSETRON HYDROCHLORIDE
  13. APAP [Concomitant]
     Active Substance: ACETAMINOPHEN

REACTIONS (1)
  - Neutropenia [Unknown]
